FAERS Safety Report 16798712 (Version 9)
Quarter: 2022Q3

REPORT INFORMATION
  Report Type: Report from Study
  Country: JP (occurrence: JP)
  Receive Date: 20190912
  Receipt Date: 20220919
  Transmission Date: 20221027
  Serious: Yes (Hospitalization, Other)
  Sender: FDA-Public Use
  Company Number: JP-ONO-2019JP030140

PATIENT
  Age: 69 Year
  Sex: Male
  Weight: 67 kg

DRUGS (15)
  1. ETELCALCETIDE [Suspect]
     Active Substance: ETELCALCETIDE
     Indication: Hyperparathyroidism secondary
     Dosage: 2.5 MILLIGRAM, Q56H
     Route: 065
     Dates: start: 20181228, end: 20200327
  2. ETELCALCETIDE [Suspect]
     Active Substance: ETELCALCETIDE
     Dosage: 5 MILLIGRAM, Q56H
     Route: 065
     Dates: start: 20200330, end: 20220325
  3. ETELCALCETIDE [Suspect]
     Active Substance: ETELCALCETIDE
     Dosage: 2.5 MILLIGRAM, Q56H
     Route: 065
     Dates: start: 20220328
  4. MIRCERA [Suspect]
     Active Substance: METHOXY POLYETHYLENE GLYCOL-EPOETIN BETA
     Indication: Nephrogenic anaemia
     Dosage: 50 MICROGRAM, Q4WK
     Route: 042
     Dates: end: 20190513
  5. MIRCERA [Suspect]
     Active Substance: METHOXY POLYETHYLENE GLYCOL-EPOETIN BETA
     Dosage: 75 MICROGRAM, Q4WK
     Route: 042
     Dates: start: 20190610, end: 20190610
  6. MIRCERA [Suspect]
     Active Substance: METHOXY POLYETHYLENE GLYCOL-EPOETIN BETA
     Dosage: 50 MICROGRAM, Q4WK
     Route: 042
     Dates: start: 20190812, end: 20191209
  7. MIRCERA [Suspect]
     Active Substance: METHOXY POLYETHYLENE GLYCOL-EPOETIN BETA
     Dosage: 75 MICROGRAM, Q4WK
     Route: 042
     Dates: start: 20200113, end: 20210111
  8. MIRCERA [Suspect]
     Active Substance: METHOXY POLYETHYLENE GLYCOL-EPOETIN BETA
     Dosage: 50 MICROGRAM, Q4WK
     Route: 042
     Dates: start: 20210208, end: 20210308
  9. MIRCERA [Suspect]
     Active Substance: METHOXY POLYETHYLENE GLYCOL-EPOETIN BETA
     Dosage: 50 MICROGRAM, Q4WK
     Route: 065
     Dates: start: 20210614
  10. ROCALTROL [Suspect]
     Active Substance: CALCITRIOL
     Indication: Product used for unknown indication
     Dosage: 0.5 MICROGRAM, Q42H
     Route: 048
     Dates: end: 20210928
  11. ROCALTROL [Suspect]
     Active Substance: CALCITRIOL
     Dosage: 0.5 MICROGRAM, QD
     Route: 065
     Dates: start: 20210929
  12. FERRIC CITRATE ANHYDROUS [Concomitant]
     Active Substance: FERRIC CITRATE ANHYDROUS
     Indication: Hyperphosphataemia
     Dosage: 1.5 GRAM, QD
     Route: 048
  13. BIXALOMER [Concomitant]
     Active Substance: BIXALOMER
     Indication: Hyperphosphataemia
     Dosage: 2 GRAM, QD
     Route: 048
  14. FOSRENOL [Concomitant]
     Active Substance: LANTHANUM CARBONATE
     Indication: Hyperphosphataemia
     Dosage: 1.5 GRAM, QD
     Route: 048
     Dates: end: 20220215
  15. LANTHANUM CARBONATE [Concomitant]
     Active Substance: LANTHANUM CARBONATE
     Dosage: 2000 MILLIGRAM, QD
     Route: 048
     Dates: start: 20220216

REACTIONS (5)
  - Intracranial aneurysm [Not Recovered/Not Resolved]
  - Myocardial ischaemia [Not Recovered/Not Resolved]
  - Otitis media chronic [Recovered/Resolved]
  - Cerebral infarction [Recovered/Resolved]
  - Amyloid arthropathy [Recovering/Resolving]

NARRATIVE: CASE EVENT DATE: 20190812
